FAERS Safety Report 6204446-0 (Version None)
Quarter: 2009Q2

REPORT INFORMATION
  Report Type: 
  Country: None (occurrence: None)
  Receive Date: 20090527
  Receipt Date: 20090424
  Transmission Date: 20091009
  Serious: No
  Sender: FDA-Public Use
  Company Number: US-BAYER-200911324BCC

PATIENT
  Age: 81 Year
  Sex: Female
  Weight: 66 kg

DRUGS (5)
  1. ALEVE (CAPLET) [Suspect]
     Indication: MUSCULOSKELETAL PAIN
     Dosage: TOTAL DAILY DOSE: 440 MG  UNIT DOSE: 220 MG
     Route: 048
     Dates: start: 20090422, end: 20090423
  2. ASPIRIN [Suspect]
     Indication: DRUG USE FOR UNKNOWN INDICATION
     Dosage: TOTAL DAILY DOSE: 325 MG  UNIT DOSE: 325 MG
     Route: 048
  3. NIFEDICAL XL 30 MG [Concomitant]
     Dosage: UNK
     Route: 065
  4. GLIPIZIDE XL 2.5 MG [Concomitant]
     Dosage: UNK
     Route: 065
  5. PRAVASTATIN [Concomitant]
     Dosage: UNK
     Route: 065

REACTIONS (1)
  - VISION BLURRED [None]
